FAERS Safety Report 4450154-6 (Version None)
Quarter: 2004Q3

REPORT INFORMATION
  Report Type: 
  Country: None (occurrence: None)
  Receive Date: 20040915
  Receipt Date: 20040513
  Transmission Date: 20050211
  Serious: Yes (Hospitalization)
  Sender: FDA-Public Use
  Company Number: PHBS2004JP06506

PATIENT
  Age: 10 Year
  Weight: 35 kg

DRUGS (5)
  1. SYMMETREL [Suspect]
     Indication: EPILEPSY
     Dosage: 95 MG, BID
     Route: 048
     Dates: start: 20040506, end: 20040513
  2. TEGRETOL [Suspect]
     Indication: EPILEPSY
     Dosage: UNK, UNK
     Route: 048
     Dates: end: 20040505
  3. TEGRETOL [Suspect]
     Dosage: UNK, UNK
     Route: 048
     Dates: start: 20040513
  4. SELENICA-R [Concomitant]
     Indication: EPILEPSY
     Route: 065
  5. SELENICA-R [Concomitant]
     Dosage: UNK, UNK
     Route: 065
     Dates: start: 20040509

REACTIONS (4)
  - ACCIDENTAL OVERDOSE [None]
  - CONVULSION [None]
  - MEDICATION ERROR [None]
  - VOMITING [None]
